FAERS Safety Report 24311602 (Version 2)
Quarter: 2024Q3

REPORT INFORMATION
  Report Type: Report from Study
  Country: CA (occurrence: CA)
  Receive Date: 20240912
  Receipt Date: 20240919
  Transmission Date: 20241017
  Serious: Yes (Other)
  Sender: Unknown Manufacturer
  Company Number: CA-MIRUM PHARMACEUTICALS, INC.-CA-MIR-24-00832

PATIENT

DRUGS (2)
  1. LIVMARLI [Suspect]
     Active Substance: MARALIXIBAT CHLORIDE
     Indication: Primary biliary cholangitis
     Dosage: INCREASE BY 2.5 MG PER WEEK AS DIRECTED BY LIVER CLINIC TO MAXIMUM 20 MG PER DAY
     Route: 048
     Dates: start: 2024, end: 20240901
  2. LIVMARLI [Suspect]
     Active Substance: MARALIXIBAT CHLORIDE
     Indication: Pruritus
     Dosage: 2.5 MILLIGRAM, QD
     Route: 048
     Dates: start: 20240711, end: 2024

REACTIONS (3)
  - Liver transplant [Recovered/Resolved]
  - Pruritus [Recovered/Resolved]
  - Off label use [Recovered/Resolved]

NARRATIVE: CASE EVENT DATE: 20240101
